FAERS Safety Report 8027602-8 (Version None)
Quarter: 2012Q1

REPORT INFORMATION
  Report Type: 
  Country: None (occurrence: None)
  Receive Date: 20120106
  Receipt Date: 20111230
  Transmission Date: 20120608
  Serious: Yes (Other)
  Sender: FDA-Public Use
  Company Number: ZA-SANOFI-AVENTIS-2012SA000044

PATIENT

DRUGS (5)
  1. BLINDED THERAPY [Suspect]
     Route: 065
  2. BLINDED THERAPY [Suspect]
     Route: 065
  3. PYRAZINAMIDE [Suspect]
     Indication: PULMONARY TUBERCULOSIS
     Route: 065
  4. RIFAMPICIN [Suspect]
     Indication: PULMONARY TUBERCULOSIS
     Route: 065
  5. BLINDED THERAPY [Suspect]
     Route: 065

REACTIONS (1)
  - PANCREATITIS [None]
